FAERS Safety Report 18437120 (Version 1)
Quarter: 2020Q4

REPORT INFORMATION
  Report Type: Spontaneous
  Country: CN (occurrence: CN)
  Receive Date: 20201028
  Receipt Date: 20201028
  Transmission Date: 20210114
  Serious: Yes (Other)
  Sender: FDA-Public Use
  Company Number: CN-PFIZER INC-2020415939

PATIENT
  Age: 62 Year
  Sex: Male

DRUGS (2)
  1. MICAFUNGIN. [Suspect]
     Active Substance: MICAFUNGIN SODIUM
     Indication: EVIDENCE BASED TREATMENT
     Dosage: 100 MG, 1X/DAY
     Route: 041
     Dates: start: 20200515
  2. MEROPENEM. [Suspect]
     Active Substance: MEROPENEM
     Indication: EVIDENCE BASED TREATMENT
     Dosage: 1 G, 3X/DAY
     Route: 041
     Dates: start: 20200515

REACTIONS (1)
  - Enterococcal infection [Unknown]

NARRATIVE: CASE EVENT DATE: 20200525
